FAERS Safety Report 5923827-3 (Version None)
Quarter: 2008Q4

REPORT INFORMATION
  Report Type: 
  Country: None (occurrence: None)
  Receive Date: 20081020
  Receipt Date: 20080929
  Transmission Date: 20090506
  Serious: Yes (Hospitalization, Other)
  Sender: FDA-Public Use
  Company Number: PHHY2008GR10127

PATIENT
  Sex: Female
  Weight: 65 kg

DRUGS (6)
  1. ACLASTA [Suspect]
     Indication: OSTEOPOROSIS
     Dosage: UNK
     Dates: start: 20070501
  2. PREZOLE [Concomitant]
     Dosage: 5X2
  3. PREZOLE [Concomitant]
     Dosage: 1/4 OUNCE
  4. CALCIORAL [Concomitant]
  5. VITAMIN D [Concomitant]
  6. HYDROCORTISONE 10MG TAB [Concomitant]

REACTIONS (10)
  - ARTHRITIS [None]
  - BONE PAIN [None]
  - DIARRHOEA [None]
  - IMMOBILE [None]
  - MUSCULOSKELETAL STIFFNESS [None]
  - PAIN IN EXTREMITY [None]
  - PYREXIA [None]
  - TEETH BRITTLE [None]
  - VASCULITIS [None]
  - WEIGHT DECREASED [None]
